FAERS Safety Report 9610396 (Version 1)
Quarter: 2013Q4

REPORT INFORMATION
  Report Type: Spontaneous
  Country: US (occurrence: US)
  Receive Date: 20131009
  Receipt Date: 20131009
  Transmission Date: 20140711
  Serious: No
  Sender: FDA-Public Use
  Company Number: US-PFIZER INC-2013287897

PATIENT
  Sex: Female

DRUGS (1)
  1. LYRICA [Suspect]
     Indication: COUGH
     Dosage: 50 MG, 3X/DAY

REACTIONS (2)
  - Off label use [Unknown]
  - Therapeutic response unexpected [Unknown]
